FAERS Safety Report 24357782 (Version 1)
Quarter: 2024Q3

REPORT INFORMATION
  Report Type: Spontaneous
  Country: US (occurrence: None)
  Receive Date: 20240924
  Receipt Date: 20240924
  Transmission Date: 20241017
  Serious: Yes (Hospitalization)
  Sender: Public
  Company Number: None

PATIENT
  Age: 60 Year
  Sex: Female

DRUGS (10)
  1. KESIMPTA [Suspect]
     Active Substance: OFATUMUMAB
     Indication: Multiple sclerosis
     Dosage: FREQ: RX1: INJECT 20 MG UNDER THE SKIN (SUBCUTANEOUS INJECTION) AT WEEKS 0.1, AND 2
     Route: 058
     Dates: start: 20240831
  2. KP VITAMIN D [Concomitant]
  3. METFORMIN TAB [Concomitant]
  4. OMEGA 3 [Concomitant]
     Active Substance: CAPSAICIN
  5. OMEPRAZOLE [Concomitant]
     Active Substance: OMEPRAZOLE
  6. ONDANSETRON [Concomitant]
     Active Substance: ONDANSETRON
  7. TRIAMCIN ACE INJ [Concomitant]
  8. HYDROCHLOROTHIAZIDE\TRIAMTERENE [Concomitant]
     Active Substance: HYDROCHLOROTHIAZIDE\TRIAMTERENE
  9. VITAMIN B12 [Concomitant]
     Active Substance: CYANOCOBALAMIN
  10. VITAMIN B6 [Concomitant]
     Active Substance: PYRIDOXINE HYDROCHLORIDE

REACTIONS (2)
  - Heart rate increased [None]
  - Body temperature increased [None]

NARRATIVE: CASE EVENT DATE: 20240916
